FAERS Safety Report 23465908 (Version 1)
Quarter: 2024Q1

REPORT INFORMATION
  Report Type: Other
  Country: CN (occurrence: None)
  Receive Date: 20240201
  Receipt Date: 20240201
  Transmission Date: 20240409
  Serious: Yes (Other)
  Sender: FDA-Public Use
  Company Number: CN-ROCHE-3499672

PATIENT
  Age: 66 Year
  Sex: Female

DRUGS (16)
  1. BEVACIZUMAB [Suspect]
     Active Substance: BEVACIZUMAB
     Indication: Ovarian cancer stage III
     Dosage: D1, D8, IN JUN/2021
     Route: 042
  2. BEVACIZUMAB [Suspect]
     Active Substance: BEVACIZUMAB
     Dosage: D1
     Route: 042
  3. BEVACIZUMAB [Suspect]
     Active Substance: BEVACIZUMAB
     Dosage: 1 CYCLE
     Route: 042
     Dates: start: 202207, end: 202211
  4. BEVACIZUMAB [Suspect]
     Active Substance: BEVACIZUMAB
     Dosage: 1 CYCLE
     Route: 042
     Dates: start: 202207, end: 202211
  5. BEVACIZUMAB [Suspect]
     Active Substance: BEVACIZUMAB
     Dosage: 5 CYCLES
     Route: 042
     Dates: start: 202207, end: 202211
  6. PACLITAXEL [Suspect]
     Active Substance: PACLITAXEL
     Indication: Ovarian cancer stage III
     Dosage: JUN/2017
     Route: 042
  7. PACLITAXEL [Suspect]
     Active Substance: PACLITAXEL
     Dosage: IN FEB/2020
     Route: 042
  8. PACLITAXEL [Suspect]
     Active Substance: PACLITAXEL
     Dosage: IN MAY/2021
     Route: 042
  9. CARBOPLATIN [Suspect]
     Active Substance: CARBOPLATIN
     Indication: Ovarian cancer stage III
     Dosage: AUC=5, IN JUN/2017
     Route: 042
  10. CARBOPLATIN [Suspect]
     Active Substance: CARBOPLATIN
     Dosage: AUC=5, IN FEB/2020
     Route: 042
  11. CARBOPLATIN [Suspect]
     Active Substance: CARBOPLATIN
     Dosage: AUC=5, IN MAY/2021
     Route: 042
  12. GEMCITABINE [Suspect]
     Active Substance: GEMCITABINE
     Indication: Ovarian cancer stage III
     Dosage: 1.0 G/M2, D1, D8, IN JUN/2021
     Route: 042
  13. IRINOTECAN [Suspect]
     Active Substance: IRINOTECAN
     Indication: Ovarian cancer stage III
     Dosage: D1, D8, D15
     Route: 042
  14. IRINOTECAN [Suspect]
     Active Substance: IRINOTECAN
     Route: 042
     Dates: start: 202207, end: 202211
  15. PACLITAXEL [Suspect]
     Active Substance: PACLITAXEL
     Indication: Ovarian cancer stage III
     Dosage: 1 CYCLE
     Route: 065
     Dates: start: 202207, end: 202211
  16. ERIBULIN [Suspect]
     Active Substance: ERIBULIN
     Indication: Ovarian cancer stage III
     Dosage: D1, D8, 5 CYCLES
     Route: 065
     Dates: start: 202207, end: 202211

REACTIONS (1)
  - Disease progression [Unknown]
